FAERS Safety Report 8564779-X (Version None)
Quarter: 2012Q3

REPORT INFORMATION
  Report Type: 
  Country: None (occurrence: None)
  Receive Date: 20120723
  Receipt Date: 20120712
  Transmission Date: 20120928
  Serious: Yes (Hospitalization)
  Sender: FDA-Public Use
  Company Number: AUR-APL-2012-01661

PATIENT
  Age: 59 Year
  Sex: Male

DRUGS (7)
  1. EZETIMIBE [Concomitant]
  2. FUROSEMIDE [Suspect]
     Indication: PRODUCT USED FOR UNKNOWN INDICATION
  3. SPIRONOLACTONE [Suspect]
     Indication: PRODUCT USED FOR UNKNOWN INDICATION
  4. TORSEMIDE [Suspect]
     Indication: PRODUCT USED FOR UNKNOWN INDICATION
  5. ASPIRIN [Concomitant]
  6. BLINDED THERAPY [Suspect]
     Indication: TYPE 2 DIABETES MELLITUS
     Dates: start: 20110325, end: 20110708
  7. CARVEDILOL [Suspect]
     Indication: PRODUCT USED FOR UNKNOWN INDICATION

REACTIONS (13)
  - COLON ADENOMA [None]
  - HYPOTENSION [None]
  - INCORRECT DOSE ADMINISTERED [None]
  - INFECTION [None]
  - AORTIC VALVE INCOMPETENCE [None]
  - VISION BLURRED [None]
  - DILATATION VENTRICULAR [None]
  - AORTIC VALVE SCLEROSIS [None]
  - LEFT ATRIAL DILATATION [None]
  - HEPATIC STEATOSIS [None]
  - HYPOVOLAEMIA [None]
  - RENAL FAILURE ACUTE [None]
  - IRRITABLE BOWEL SYNDROME [None]
